FAERS Safety Report 16212480 (Version 5)
Quarter: 2020Q1

REPORT INFORMATION
  Report Type: Spontaneous
  Country: US (occurrence: US)
  Receive Date: 20190418
  Receipt Date: 20200203
  Transmission Date: 20200409
  Serious: No
  Sender: FDA-Public Use
  Company Number: US-PFIZER INC-2019164278

PATIENT
  Age: 74 Year
  Sex: Male
  Weight: 69.4 kg

DRUGS (2)
  1. RAPAMUNE [Suspect]
     Active Substance: SIROLIMUS
     Indication: HEART TRANSPLANT
     Dosage: 4 MG, 1X/DAY (EVERY MORNING)
     Route: 048
  2. RAPAMUNE [Suspect]
     Active Substance: SIROLIMUS
     Indication: HEART TRANSPLANT REJECTION
     Dosage: 4 MG, DAILY
     Route: 048

REACTIONS (6)
  - Off label use [Unknown]
  - Upper respiratory tract congestion [Unknown]
  - Product use in unapproved indication [Unknown]
  - Intentional product misuse [Unknown]
  - Respiratory disorder [Unknown]
  - Somnolence [Unknown]

NARRATIVE: CASE EVENT DATE: 202001
